FAERS Safety Report 13907336 (Version 1)
Quarter: 2017Q3

REPORT INFORMATION
  Report Type: Spontaneous
  Country: US (occurrence: US)
  Receive Date: 20170825
  Receipt Date: 20170825
  Transmission Date: 20171127
  Serious: No
  Sender: FDA-Public Use
  Company Number: US-ROCHE-1085076

PATIENT
  Sex: Male
  Weight: 9.28 kg

DRUGS (5)
  1. BICITRA [Concomitant]
     Active Substance: CITRIC ACID, 1-STEARYL ESTER\SODIUM CITRATE
     Indication: METABOLIC ACIDOSIS
     Route: 048
     Dates: start: 20120202
  2. POLYVISOL WITH IRON [Concomitant]
     Route: 048
     Dates: start: 20110804
  3. ROCALTROL [Concomitant]
     Active Substance: CALCITRIOL
     Route: 048
     Dates: start: 20120809
  4. NUTROPIN [Suspect]
     Active Substance: SOMATROPIN
     Indication: CHRONIC KIDNEY DISEASE
  5. NUTROPIN [Suspect]
     Active Substance: SOMATROPIN
     Indication: BODY HEIGHT BELOW NORMAL
     Route: 058
     Dates: start: 20120712

REACTIONS (2)
  - Haematochezia [Unknown]
  - Constipation [Unknown]
